FAERS Safety Report 7993352-7 (Version None)
Quarter: 2011Q4

REPORT INFORMATION
  Report Type: 
  Country: None (occurrence: None)
  Receive Date: 20111219
  Receipt Date: 20110719
  Transmission Date: 20120403
  Serious: No
  Sender: FDA-Public Use
  Company Number: US-ASTRAZENECA-2011SE43285

PATIENT
  Age: 73 Year
  Sex: Male

DRUGS (5)
  1. TWO HIGH BLOOD PRESSURE MEDICATIONS [Concomitant]
  2. CRESTOR [Suspect]
     Indication: HYPERCHOLESTEROLAEMIA
     Route: 048
  3. COUMADIN [Concomitant]
  4. VITAMIN D [Concomitant]
  5. ASPIRIN [Concomitant]

REACTIONS (3)
  - CONSTIPATION [None]
  - FATIGUE [None]
  - PYREXIA [None]
